FAERS Safety Report 5010651-1 (Version None)
Quarter: 2006Q2

REPORT INFORMATION
  Report Type: 
  Country: None (occurrence: None)
  Receive Date: 20060525
  Receipt Date: 20060517
  Transmission Date: 20061013
  Serious: Yes (Other)
  Sender: FDA-Public Use
  Company Number: PHBS2006BR07445

PATIENT
  Age: 30 Year
  Sex: Male

DRUGS (3)
  1. CLOZAPINE [Suspect]
     Indication: SCHIZOPHRENIA, DISORGANISED TYPE
     Dosage: 400 MG/D
     Route: 065
  2. CLOZAPINE [Suspect]
     Dosage: 300 MG/D
     Route: 065
     Dates: start: 20030801
  3. CLOZAPINE [Suspect]
     Dosage: 250 MG/D
     Route: 065
     Dates: start: 20030901

REACTIONS (5)
  - CONSTIPATION [None]
  - ENURESIS [None]
  - OBSESSIVE-COMPULSIVE DISORDER [None]
  - SALIVARY HYPERSECRETION [None]
  - SEDATION [None]
